FAERS Safety Report 4975554-7 (Version None)
Quarter: 2006Q2

REPORT INFORMATION
  Report Type: 
  Country: None (occurrence: None)
  Receive Date: 20060410
  Receipt Date: 20060323
  Transmission Date: 20061013
  Serious: Yes (Other)
  Sender: FDA-Public Use
  Company Number: ZA200603002578

PATIENT
  Age: 9 Year
  Sex: Female

DRUGS (3)
  1. HUMATROPE [Suspect]
     Indication: GROWTH HORMONE DEFICIENCY
     Dosage: SUBCUTANEOUS
     Route: 058
     Dates: start: 20050302, end: 20060201
  2. LEVOTHYROXINE SODIUM [Concomitant]
  3. COVOCORT (HYDROCORTISONE) [Concomitant]

REACTIONS (1)
  - GERM CELL CANCER [None]
